FAERS Safety Report 14582348 (Version 1)
Quarter: 2018Q1

REPORT INFORMATION
  Report Type: Spontaneous
  Country: US (occurrence: US)
  Receive Date: 20180228
  Receipt Date: 20180228
  Transmission Date: 20180509
  Serious: Yes (Other)
  Sender: FDA-Public Use
  Company Number: US-ACS-001009

PATIENT
  Sex: Female

DRUGS (1)
  1. CEFUROXIME FOR INJECTION [Suspect]
     Active Substance: CEFUROXIME
     Dosage: FOR THREE DAYS A WEEK
     Route: 030
     Dates: start: 201711

REACTIONS (2)
  - Injection site bruising [Not Recovered/Not Resolved]
  - Product solubility abnormal [Not Recovered/Not Resolved]
